FAERS Safety Report 6148912-5 (Version None)
Quarter: 2009Q2

REPORT INFORMATION
  Report Type: 
  Country: None (occurrence: None)
  Receive Date: 20090407
  Receipt Date: 20090325
  Transmission Date: 20091009
  Serious: Yes (Hospitalization)
  Sender: FDA-Public Use
  Company Number: 233374K09USA

PATIENT
  Age: 25 Year
  Sex: Female

DRUGS (1)
  1. REBIF [Suspect]
     Indication: MULTIPLE SCLEROSIS
     Dosage: 44 MCG, 3 IN 7 DAYS, SUBCUTANEOUS
     Route: 058
     Dates: start: 20090127

REACTIONS (2)
  - ABASIA [None]
  - STAPHYLOCOCCAL BACTERAEMIA [None]
